FAERS Safety Report 4712923-4 (Version None)
Quarter: 2005Q3

REPORT INFORMATION
  Report Type: 
  Country: None (occurrence: None)
  Receive Date: 20050712
  Receipt Date: 20050712
  Transmission Date: 20060218
  Serious: Yes (Other)
  Sender: FDA-Public Use
  Company Number: None

PATIENT
  Sex: Female
  Weight: 58.6 kg

DRUGS (2)
  1. GEMZAR [Suspect]
     Indication: NEOPLASM
     Dosage: 1000 MG/M2 IV DAYS 1, 8, 15, 22. 2 WK REST Q 42 DAYS
     Route: 042
     Dates: start: 20050613
  2. CPT-II [Suspect]
     Dosage: 75 MG/M2 IV DAYS 1,8,15,22 2 WKS REST Q 42 DAYS
     Route: 042

REACTIONS (11)
  - ANAEMIA [None]
  - ANOREXIA [None]
  - COLITIS [None]
  - CONFUSIONAL STATE [None]
  - DEHYDRATION [None]
  - DIARRHOEA [None]
  - FEBRILE NEUTROPENIA [None]
  - GASTROINTESTINAL HAEMORRHAGE [None]
  - HYPOTENSION [None]
  - NAUSEA [None]
  - WEIGHT DECREASED [None]
